FAERS Safety Report 4759935-2 (Version None)
Quarter: 2005Q3

REPORT INFORMATION
  Report Type: 
  Country: None (occurrence: None)
  Receive Date: 20050902
  Receipt Date: 20050812
  Transmission Date: 20060218
  Serious: Yes (Life-Threatening, Hospitalization)
  Sender: FDA-Public Use
  Company Number: JP-ABBOTT-05P-087-0308411-00

PATIENT
  Sex: Male
  Weight: 30 kg

DRUGS (14)
  1. KLARICID [Suspect]
     Indication: SINUSITIS
     Route: 048
     Dates: start: 20050606, end: 20050715
  2. HALOPERIDOL [Suspect]
     Indication: VASCULAR DEMENTIA
     Route: 048
     Dates: start: 20050611, end: 20050715
  3. FUROSEMIDE [Concomitant]
     Indication: RENAL FAILURE
     Route: 048
     Dates: start: 20041125, end: 20050721
  4. FUROSEMIDE [Concomitant]
     Indication: ATRIOVENTRICULAR BLOCK
  5. AMLODIPINE BESYLATE [Concomitant]
     Indication: RENAL FAILURE
     Route: 048
     Dates: start: 20041125, end: 20050721
  6. AMLODIPINE BESYLATE [Concomitant]
     Indication: ATRIOVENTRICULAR BLOCK
  7. ISOSORBIDE MONONITRATE [Concomitant]
     Indication: RENAL FAILURE
     Route: 048
     Dates: start: 20041125, end: 20050721
  8. ISOSORBIDE MONONITRATE [Concomitant]
     Indication: ATRIOVENTRICULAR BLOCK
  9. REBAMIPIDE [Concomitant]
     Indication: RENAL FAILURE
     Route: 048
     Dates: start: 20041125, end: 20050721
  10. REBAMIPIDE [Concomitant]
     Indication: ATRIOVENTRICULAR BLOCK
  11. FERROUS CITRATE [Concomitant]
     Indication: RENAL FAILURE
     Route: 048
     Dates: start: 20041125, end: 20050721
  12. FERROUS CITRATE [Concomitant]
     Indication: ATRIOVENTRICULAR BLOCK
  13. CALCIUM POLYSTYRENE SULFONATE [Concomitant]
     Indication: RENAL FAILURE
     Dosage: NOT REPORTED
     Route: 048
     Dates: start: 20041126, end: 20050721
  14. CALCIUM POLYSTYRENE SULFONATE [Concomitant]
     Indication: ATRIOVENTRICULAR BLOCK

REACTIONS (8)
  - ANAEMIA [None]
  - ANOREXIA [None]
  - ASTHENIA [None]
  - DEPRESSED LEVEL OF CONSCIOUSNESS [None]
  - LIVER DISORDER [None]
  - MALAISE [None]
  - PLATELET COUNT DECREASED [None]
  - RENAL FAILURE CHRONIC [None]
